FAERS Safety Report 23339220 (Version 1)
Quarter: 2023Q4

REPORT INFORMATION
  Report Type: Report from Study
  Country: US (occurrence: US)
  Receive Date: 20231226
  Receipt Date: 20231226
  Transmission Date: 20240110
  Serious: Yes (Other)
  Sender: FDA-Public Use
  Company Number: US-ABBVIE-5554732

PATIENT
  Sex: Male

DRUGS (1)
  1. IMBRUVICA [Suspect]
     Active Substance: IBRUTINIB
     Indication: Chronic lymphocytic leukaemia
     Route: 048
     Dates: start: 20230418

REACTIONS (15)
  - Squamous cell carcinoma [Unknown]
  - Fungal foot infection [Unknown]
  - Amnesia [Unknown]
  - Visual impairment [Unknown]
  - Basal cell carcinoma [Unknown]
  - Blood pressure increased [Unknown]
  - Disturbance in attention [Unknown]
  - Diarrhoea [Unknown]
  - Iron deficiency [Unknown]
  - Muscle fatigue [Unknown]
  - Increased tendency to bruise [Unknown]
  - Haemorrhagic diathesis [Unknown]
  - Muscle spasms [Unknown]
  - Follicular disorder [Unknown]
  - Onychoclasis [Unknown]

NARRATIVE: CASE EVENT DATE: 20230101
